FAERS Safety Report 6577035-6 (Version None)
Quarter: 2010Q1

REPORT INFORMATION
  Report Type: 
  Country: None (occurrence: None)
  Receive Date: 20100210
  Receipt Date: 20100201
  Transmission Date: 20100710
  Serious: Yes (Other)
  Sender: FDA-Public Use
  Company Number: JP-BRISTOL-MYERS SQUIBB COMPANY-14642557

PATIENT
  Age: 79 Year
  Sex: Male
  Weight: 59 kg

DRUGS (10)
  1. ERBITUX [Suspect]
     Indication: COLON CANCER
     Dosage: 20NOV08 400MG/M2;(250MG/M2)25NOV08-24FEB09;200MG/M217MAR-21APR09;RECENT INFSN (24FEB09)
     Route: 042
     Dates: start: 20081120, end: 20090421
  2. IRINOTECAN HCL [Concomitant]
     Indication: COLON CANCER
     Dosage: 20-20NOV08(120MG/M2) 02-02DEC08(90MG/M2) 16-29DEC08(60MG/M2)
     Route: 042
     Dates: start: 20081111, end: 20081229
  3. RESTAMIN [Concomitant]
     Indication: PREMEDICATION
     Route: 048
     Dates: start: 20081120, end: 20090421
  4. DECADRON [Concomitant]
     Indication: PREMEDICATION
     Route: 042
     Dates: start: 20081120, end: 20090421
  5. KYTRIL [Concomitant]
     Indication: ANTIEMETIC SUPPORTIVE CARE
     Route: 042
     Dates: start: 20081120, end: 20081229
  6. NEU-UP [Concomitant]
     Route: 058
     Dates: start: 20081118, end: 20081123
  7. SIMVASTATIN [Concomitant]
     Route: 048
  8. ALOSITOL [Concomitant]
     Route: 048
  9. FERROMIA [Concomitant]
     Dosage: TABS
     Route: 048
  10. ENSURE [Concomitant]
     Route: 048

REACTIONS (1)
  - DECREASED APPETITE [None]
